FAERS Safety Report 20596202 (Version 6)
Quarter: 2022Q2

REPORT INFORMATION
  Report Type: Report from Study
  Country: US (occurrence: None)
  Receive Date: 20220315
  Receipt Date: 20220603
  Transmission Date: 20220721
  Serious: Yes (Life-Threatening, Hospitalization, Other)
  Sender: FDA-Public Use
  Company Number: 2022A108297

PATIENT
  Age: 20239 Day
  Sex: Female
  Weight: 108.9 kg

DRUGS (1)
  1. TEZSPIRE [Suspect]
     Active Substance: TEZEPELUMAB-EKKO
     Indication: Asthma
     Route: 058
     Dates: start: 20220307

REACTIONS (6)
  - Anaphylactic reaction [Not Recovered/Not Resolved]
  - Chest pain [Unknown]
  - Urticaria [Unknown]
  - Dyspnoea [Unknown]
  - Hypersensitivity [Unknown]
  - Pruritus [Unknown]

NARRATIVE: CASE EVENT DATE: 20220308
